FAERS Safety Report 21547224 (Version 1)
Quarter: 2022Q4

REPORT INFORMATION
  Report Type: Report from Study
  Country: US (occurrence: US)
  Receive Date: 20221103
  Receipt Date: 20221103
  Transmission Date: 20230113
  Serious: No
  Sender: FDA-Public Use
  Company Number: US-ABBVIE-4159411

PATIENT
  Sex: Female

DRUGS (3)
  1. RISANKIZUMAB [Suspect]
     Active Substance: RISANKIZUMAB
     Indication: Psoriasis
     Dosage: WEEK 0
     Route: 058
     Dates: start: 20220604
  2. RISANKIZUMAB [Suspect]
     Active Substance: RISANKIZUMAB
     Dosage: WEEK 4
     Route: 058
  3. RISANKIZUMAB [Suspect]
     Active Substance: RISANKIZUMAB
     Dosage: EVERY 12 WEEKS THEREAFTER, SQ.
     Route: 058

REACTIONS (1)
  - Erythema [Unknown]
